FAERS Safety Report 7997844-6 (Version None)
Quarter: 2011Q4

REPORT INFORMATION
  Report Type: 
  Country: None (occurrence: None)
  Receive Date: 20111221
  Receipt Date: 20111208
  Transmission Date: 20120403
  Serious: Yes (Hospitalization)
  Sender: FDA-Public Use
  Company Number: PHHY2011DE20658

PATIENT
  Sex: Female

DRUGS (7)
  1. SANDOSTATIN LAR [Suspect]
     Indication: NEUROENDOCRINE TUMOUR
     Dosage: 10 MG EVERY 28 DAYS
     Route: 030
     Dates: start: 20100101
  2. SANDOSTATIN LAR [Suspect]
     Dosage: 10 MG EVERY 28 DAYS
     Route: 030
     Dates: start: 20110218
  3. ACTONEL [Concomitant]
     Indication: OSTEOPOROSIS
  4. ASPIRIN [Concomitant]
     Indication: CORONARY ARTERY DISEASE
     Dosage: 100 MG/DAY
     Route: 048
  5. AMLODIPINE [Concomitant]
     Indication: HYPERTENSION
     Dosage: 5 MG, DAILY
     Route: 048
  6. CALCIVIT D 600 [Concomitant]
     Indication: OSTEOPOROSIS
     Dosage: 600 MG/DAY
     Route: 048
  7. LORZAAR [Concomitant]
     Indication: HYPERTENSION
     Dosage: 500 MG/ DAY
     Route: 048

REACTIONS (4)
  - ASTHENIA [None]
  - DIZZINESS [None]
  - SPINAL FRACTURE [None]
  - BACK PAIN [None]
